FAERS Safety Report 5701257-7 (Version None)
Quarter: 2008Q2

REPORT INFORMATION
  Report Type: 
  Country: None (occurrence: None)
  Receive Date: 20080410
  Receipt Date: 20080313
  Transmission Date: 20081010
  Serious: No
  Sender: FDA-Public Use
  Company Number: US-BOEHRINGER INGELHEIM GMBH, GERMANY-2008-BP-02800BP

PATIENT
  Age: 85 Year
  Sex: Male

DRUGS (5)
  1. MIRAPEX [Suspect]
     Indication: RESTLESS LEGS SYNDROME
     Route: 048
     Dates: start: 20071211, end: 20080201
  2. MIRAPEX [Suspect]
     Route: 048
     Dates: start: 20080201, end: 20080219
  3. LASIX [Concomitant]
     Route: 048
     Dates: start: 20070201
  4. XOPENEX [Concomitant]
     Dates: start: 20070201
  5. ASPIRIN [Concomitant]
     Route: 048
     Dates: start: 20070201

REACTIONS (2)
  - DRUG INEFFECTIVE [None]
  - DYSKINESIA [None]
